FAERS Safety Report 9363818 (Version 2)
Quarter: 2014Q2

REPORT INFORMATION
  Report Type: Report from Study
  Country: US (occurrence: US)
  Receive Date: 20130624
  Receipt Date: 20140409
  Transmission Date: 20141212
  Serious: Yes (Life-Threatening, Hospitalization)
  Sender: FDA-Public Use
  Company Number: US-ROCHE-1215802

PATIENT
  Age: 73 Year
  Sex: Male
  Weight: 72.5 kg

DRUGS (6)
  1. BEVACIZUMAB [Suspect]
     Indication: PANCREATIC NEUROENDOCRINE TUMOUR
     Route: 065
     Dates: start: 20130222
  2. BEVACIZUMAB [Suspect]
     Dosage: LAST DOSE ADMINISTERED : 09/APR/2013.
     Route: 065
     Dates: start: 20130326
  3. EVEROLIMUS [Suspect]
     Indication: PANCREATIC NEUROENDOCRINE TUMOUR
     Route: 065
     Dates: start: 20130224
  4. EVEROLIMUS [Suspect]
     Route: 065
     Dates: start: 20130326
  5. OCTREOTIDE ACETATE [Suspect]
     Indication: PANCREATIC NEUROENDOCRINE TUMOUR
     Dosage: LAST DOSE ADMINISTERED 12/APR/2012.
     Route: 065
  6. ASPIRIN [Suspect]
     Indication: PRODUCT USED FOR UNKNOWN INDICATION
     Route: 065

REACTIONS (6)
  - Cardiac failure [Recovering/Resolving]
  - Hypertension [Recovering/Resolving]
  - Dyspnoea [Recovering/Resolving]
  - Ejection fraction decreased [Recovering/Resolving]
  - Duodenal ulcer [Recovering/Resolving]
  - Upper gastrointestinal haemorrhage [Recovering/Resolving]
